FAERS Safety Report 9478510 (Version 1)
Quarter: 2013Q3

REPORT INFORMATION
  Report Type: Spontaneous
  Country: ES (occurrence: ES)
  Receive Date: 20130827
  Receipt Date: 20130827
  Transmission Date: 20140515
  Serious: Yes (Hospitalization)
  Sender: FDA-Public Use
  Company Number: ES-ROXANE LABORATORIES, INC.-2013-RO-01401RO

PATIENT
  Age: 71 Year
  Sex: Female

DRUGS (7)
  1. CALCITRIOL [Suspect]
     Indication: HYPOPARATHYROIDISM
     Dosage: 1 MCG
  2. CALCITRIOL [Suspect]
     Indication: HYPOTHYROIDISM
  3. CALCIUM CARBONATE [Suspect]
     Indication: HYPOPARATHYROIDISM
     Dosage: 900 MG
  4. CALCIUM CARBONATE [Suspect]
     Indication: HYPOTHYROIDISM
  5. LISINOPRIL HYDROCHLOROTHIAZIDE [Suspect]
     Indication: HYPERTENSION
  6. LEVOTHYROXINE [Suspect]
     Indication: HYPOPARATHYROIDISM
     Dosage: 100 MCG
  7. LEVOTHYROXINE [Suspect]
     Indication: HYPOTHYROIDISM

REACTIONS (1)
  - Milk-alkali syndrome [Recovered/Resolved]
